FAERS Safety Report 20623569 (Version 1)
Quarter: 2022Q1

REPORT INFORMATION
  Report Type: Spontaneous
  Country: US (occurrence: None)
  Receive Date: 20220322
  Receipt Date: 20220322
  Transmission Date: 20220423
  Serious: No
  Sender: FDA-Public Use
  Company Number: None

PATIENT

DRUGS (2)
  1. NEXTERONE [Suspect]
     Active Substance: AMIODARONE HYDROCHLORIDE
     Dosage: FREQUENCY : ONCE;?
     Route: 042
  2. MYXREDLIN [Suspect]
     Active Substance: INSULIN HUMAN
     Dosage: OTHER STRENGTH : 100UNITS PER 100ML;?
     Route: 042

REACTIONS (5)
  - Product packaging issue [None]
  - Product label issue [None]
  - Blood glucose decreased [None]
  - Wrong product administered [None]
  - Product storage error [None]
